FAERS Safety Report 15339692 (Version 1)
Quarter: 2018Q3

REPORT INFORMATION
  Report Type: Spontaneous
  Country: CA (occurrence: CA)
  Receive Date: 20180831
  Receipt Date: 20180831
  Transmission Date: 20181010
  Serious: Yes (Hospitalization)
  Sender: FDA-Public Use
  Company Number: PHHY2018CA079777

PATIENT
  Age: 61 Year
  Sex: Male

DRUGS (4)
  1. METHOTREXATE. [Suspect]
     Active Substance: METHOTREXATE
     Indication: RHEUMATOID ARTHRITIS
     Dosage: UNK
     Route: 065
     Dates: start: 201310
  2. ORENCIA [Suspect]
     Active Substance: ABATACEPT
     Indication: ARTHRITIS
     Dosage: EVERY FOUR WEEKS FOLLOWING INITIAL LOADING DOSE
     Route: 042
     Dates: start: 201209
  3. ORENCIA [Suspect]
     Active Substance: ABATACEPT
     Dosage: UNK
     Route: 042
     Dates: start: 201310
  4. HYDROXYCHLOROQUINE [Concomitant]
     Active Substance: HYDROXYCHLOROQUINE
     Indication: RHEUMATOID ARTHRITIS

REACTIONS (14)
  - Dyspnoea [Recovered/Resolved]
  - Cardiomegaly [Unknown]
  - Alveolitis [Recovered/Resolved]
  - Pneumonia [Recovering/Resolving]
  - Cough [Recovered/Resolved]
  - Pulmonary arterial hypertension [Not Recovered/Not Resolved]
  - Symptom recurrence [Not Recovered/Not Resolved]
  - Fluid overload [Unknown]
  - Venous pressure jugular increased [Unknown]
  - Decreased activity [Unknown]
  - Arthritis [Unknown]
  - Hypoxia [Unknown]
  - Chest pain [Unknown]
  - Syncope [Unknown]

NARRATIVE: CASE EVENT DATE: 2013
